FAERS Safety Report 9914118 (Version 1)
Quarter: 2014Q1

REPORT INFORMATION
  Report Type: Spontaneous
  Country: US (occurrence: None)
  Receive Date: 20140214
  Receipt Date: 20140214
  Transmission Date: 20141002
  Serious: Yes (Death)
  Sender: FDA-Public Use
  Company Number: 20140020

PATIENT
  Age: 36 Year
  Sex: Male
  Weight: 105.24 kg

DRUGS (2)
  1. FENTANYL [Suspect]
  2. HYDROCODONE [Suspect]

REACTIONS (13)
  - Pulmonary congestion [None]
  - Pulmonary oedema [None]
  - Cardiomegaly [None]
  - Left ventricular hypertrophy [None]
  - Hypertensive cardiomyopathy [None]
  - Coronary artery stenosis [None]
  - Arteriosclerosis coronary artery [None]
  - Pneumonia [None]
  - Contusion [None]
  - Excoriation [None]
  - Toxicity to various agents [None]
  - Accidental death [None]
  - Drug abuse [None]
